FAERS Safety Report 16866658 (Version 4)
Quarter: 2020Q2

REPORT INFORMATION
  Report Type: Spontaneous
  Country: JP (occurrence: PT)
  Receive Date: 20190930
  Receipt Date: 20200429
  Transmission Date: 20200713
  Serious: Yes (Hospitalization, Other)
  Sender: FDA-Public Use
  Company Number: PT-B.I. PHARMACEUTICALS,INC./RIDGEFIELD-2019-BI-103964

PATIENT
  Age: 80 Year
  Sex: Male

DRUGS (3)
  1. FUROSEMIDE. [Suspect]
     Active Substance: FUROSEMIDE
     Indication: TACHYPNOEA
     Route: 065
  2. HYDROCORTISONE. [Suspect]
     Active Substance: HYDROCORTISONE
     Indication: TACHYPNOEA
     Route: 065
  3. ATROVENT [Suspect]
     Active Substance: IPRATROPIUM BROMIDE
     Indication: TACHYPNOEA
     Route: 065

REACTIONS (4)
  - Diabetic ketoacidosis [Unknown]
  - Off label use [Unknown]
  - Dehydration [Unknown]
  - Secretion discharge [Unknown]
